FAERS Safety Report 13050947 (Version 1)
Quarter: 2016Q4

REPORT INFORMATION
  Report Type: Spontaneous
  Country: US (occurrence: US)
  Receive Date: 20161221
  Receipt Date: 20161221
  Transmission Date: 20170207
  Serious: No
  Sender: FDA-Public Use
  Company Number: US-ENDO PHARMACEUTICALS INC.-2016-001758

PATIENT
  Age: 50 Year
  Sex: Female
  Weight: 113.5 kg

DRUGS (2)
  1. OPANA ER [Suspect]
     Active Substance: OXYMORPHONE HYDROCHLORIDE
     Indication: BACK PAIN
     Route: 048
     Dates: start: 201510, end: 201511
  2. OPANA ER [Suspect]
     Active Substance: OXYMORPHONE HYDROCHLORIDE
     Route: 048
     Dates: start: 201511

REACTIONS (3)
  - Cystitis [Recovered/Resolved]
  - Inappropriate schedule of drug administration [Not Recovered/Not Resolved]
  - Dizziness [Recovered/Resolved]

NARRATIVE: CASE EVENT DATE: 201510
